FAERS Safety Report 8597399-1 (Version None)
Quarter: 2012Q3

REPORT INFORMATION
  Report Type: 
  Country: None (occurrence: None)
  Receive Date: 20120801
  Receipt Date: 20120720
  Transmission Date: 20120928
  Serious: Yes (Other)
  Sender: FDA-Public Use
  Company Number: 2012MA009177

PATIENT
  Age: 52 Year
  Sex: Male

DRUGS (3)
  1. GABAPENTIN [Suspect]
     Indication: PAIN
     Dosage: 1500 MG; QD
     Dates: start: 20110725
  2. OXYCONTIN [Concomitant]
  3. CITALOPRAM HYDROBROMIDE [Concomitant]

REACTIONS (4)
  - DEPRESSED MOOD [None]
  - ANXIETY [None]
  - SEDATION [None]
  - SUICIDAL IDEATION [None]
